FAERS Safety Report 14007422 (Version 1)
Quarter: 2017Q3

REPORT INFORMATION
  Report Type: Report from Study
  Country: CR (occurrence: CR)
  Receive Date: 20170925
  Receipt Date: 20170925
  Transmission Date: 20171128
  Serious: Yes (Other)
  Sender: FDA-Public Use
  Company Number: PHHY2017CR140496

PATIENT
  Age: 68 Year
  Sex: Female

DRUGS (1)
  1. EXFORGE [Suspect]
     Active Substance: AMLODIPINE BESYLATE\VALSARTAN
     Indication: PRODUCT USED FOR UNKNOWN INDICATION
     Dosage: (AMLODIPINE 10 MG, VALSARTAN 320 MG)
     Route: 065
     Dates: start: 201607

REACTIONS (2)
  - Cerebrovascular accident [Unknown]
  - Memory impairment [Unknown]

NARRATIVE: CASE EVENT DATE: 201701
